FAERS Safety Report 10051290 (Version 3)
Quarter: 2014Q2

REPORT INFORMATION
  Report Type: Spontaneous
  Country: US (occurrence: US)
  Receive Date: 20140401
  Receipt Date: 20140507
  Transmission Date: 20141212
  Serious: No
  Sender: FDA-Public Use
  Company Number: US-PFIZER INC-2014087982

PATIENT
  Age: 48 Year
  Sex: Female

DRUGS (1)
  1. GABAPENTIN [Suspect]
     Indication: NEURALGIA
     Dosage: 300 MG, TID
     Route: 048

REACTIONS (4)
  - Drug ineffective [Unknown]
  - Feeling abnormal [Recovered/Resolved]
  - Restless legs syndrome [Recovered/Resolved]
  - Feeling jittery [Recovered/Resolved]
